FAERS Safety Report 18967600 (Version 1)
Quarter: 2021Q1

REPORT INFORMATION
  Report Type: Spontaneous
  Country: US (occurrence: US)
  Receive Date: 20210303
  Receipt Date: 20210303
  Transmission Date: 20210420
  Serious: Yes (Disabling)
  Sender: FDA-Public Use
  Company Number: None

PATIENT
  Age: 57 Year
  Sex: Male
  Weight: 86.85 kg

DRUGS (2)
  1. ALIVE MULTI?VITAMIN DAILY [Concomitant]
  2. TESTOSTERONE CYPIONATE. [Suspect]
     Active Substance: TESTOSTERONE CYPIONATE
     Indication: BLOOD TESTOSTERONE DECREASED
     Dosage: ?          QUANTITY:1 INJECTION(S);OTHER FREQUENCY:WEEKLY;?
     Route: 030
     Dates: start: 20210129, end: 20210219

REACTIONS (6)
  - Drug ineffective [None]
  - Chest pain [None]
  - Injection site nodule [None]
  - Product substitution issue [None]
  - Product colour issue [None]
  - Cardiac flutter [None]

NARRATIVE: CASE EVENT DATE: 20210217
